FAERS Safety Report 5392143-3 (Version None)
Quarter: 2007Q3

REPORT INFORMATION
  Report Type: 
  Country: None (occurrence: None)
  Receive Date: 20070718
  Receipt Date: 20070718
  Transmission Date: 20080115
  Serious: Yes (Hospitalization)
  Sender: FDA-Public Use
  Company Number: None

PATIENT
  Sex: Female
  Weight: 85.7298 kg

DRUGS (9)
  1. LISINOPRIL [Suspect]
     Indication: HYPERTENSION
     Dosage: 40MG QD PO
     Route: 048
     Dates: start: 20060101
  2. LISINOPRIL [Suspect]
     Indication: LEFT VENTRICULAR HYPERTROPHY
     Dosage: 40MG QD PO
     Route: 048
     Dates: start: 20060101
  3. CARDIZEM [Suspect]
     Indication: HYPERTENSION
     Dosage: 40MG QD PO
     Route: 048
     Dates: start: 20060101
  4. CARDIZEM [Suspect]
     Indication: LEFT VENTRICULAR HYPERTROPHY
     Dosage: 40MG QD PO
     Route: 048
     Dates: start: 20060101
  5. NIFEDIPINE [Suspect]
     Indication: HYPERTENSION
     Dosage: 40MG QD PO
     Route: 048
     Dates: start: 20060101
  6. NIFEDIPINE [Suspect]
     Indication: LEFT VENTRICULAR HYPERTROPHY
     Dosage: 40MG QD PO
     Route: 048
     Dates: start: 20060101
  7. HYDROCHLOROTHIAZIDE [Suspect]
     Dosage: 90MG QD PO
     Route: 048
     Dates: start: 20060101
  8. DIOVAN [Suspect]
     Dosage: 90MG QD PO
     Route: 048
     Dates: start: 20060101
  9. CATAPRES [Suspect]
     Dosage: 90MG QD PO
     Route: 048
     Dates: start: 20060101

REACTIONS (7)
  - ABDOMINAL PAIN [None]
  - COUGH [None]
  - DIZZINESS [None]
  - DRUG INEFFECTIVE [None]
  - MALAISE [None]
  - NAUSEA [None]
  - VOMITING [None]
